FAERS Safety Report 6980523-1 (Version None)
Quarter: 2010Q3

REPORT INFORMATION
  Report Type: 
  Country: None (occurrence: None)
  Receive Date: 20100914
  Receipt Date: 20100903
  Transmission Date: 20110219
  Serious: Yes (Hospitalization, Other)
  Sender: FDA-Public Use
  Company Number: PHBS2010DE00571

PATIENT
  Sex: Male
  Weight: 82 kg

DRUGS (12)
  1. ALISKIREN ALI+ [Suspect]
     Indication: ESSENTIAL HYPERTENSION
     Dosage: 300 MG/DAY
     Dates: start: 20090226
  2. EXFORGE [Suspect]
     Dosage: 160 VALS - 10 AMLO MG/DAY
     Dates: start: 20080924
  3. MOXONIDINE [Suspect]
     Indication: SINUS BRADYCARDIA
     Dosage: UNK
  4. BETA BLOCKING AGENTS [Concomitant]
     Dosage: UNK
  5. CALCIUM CHANNEL BLOCKERS [Concomitant]
     Dosage: UNK
  6. DIURETICS [Concomitant]
     Dosage: UNK
  7. VASODILATORS USED IN CARDIAC DISEASES [Concomitant]
     Dosage: UNK
  8. NITRATES [Concomitant]
     Dosage: UNK
  9. PLATELETS [Concomitant]
     Dosage: UNK
  10. CHOLESTEROL- AND TRIGLYCERIDE REDUCERS [Concomitant]
     Dosage: UNK
  11. INSULIN [Concomitant]
     Dosage: UNK
  12. ORAL ANTIDIABETICS [Concomitant]
     Dosage: UNK

REACTIONS (8)
  - ARRHYTHMIA [None]
  - CHRONIC OBSTRUCTIVE PULMONARY DISEASE [None]
  - HYPERKALAEMIA [None]
  - HYPERTENSIVE CRISIS [None]
  - PNEUMONIA [None]
  - RENAL FAILURE [None]
  - SINUS BRADYCARDIA [None]
  - SUPRAVENTRICULAR EXTRASYSTOLES [None]
